FAERS Safety Report 18035387 (Version 3)
Quarter: 2020Q4

REPORT INFORMATION
  Report Type: Spontaneous
  Country: RU (occurrence: RU)
  Receive Date: 20200717
  Receipt Date: 20201027
  Transmission Date: 20210113
  Serious: Yes (Other)
  Sender: FDA-Public Use
  Company Number: RU-ROCHE-2642766

PATIENT
  Age: 46 Year
  Sex: Female

DRUGS (7)
  1. TECENTRIQ [Suspect]
     Active Substance: ATEZOLIZUMAB
     Indication: BREAST CANCER
     Dosage: DAYS 1 AND 15 OF EACH TREATMENT CYCLE
     Route: 065
     Dates: start: 20200227, end: 20200611
  2. TAMOXIFEN [Concomitant]
     Active Substance: TAMOXIFEN
     Dates: start: 201609, end: 201912
  3. DOCETAXEL. [Concomitant]
     Active Substance: DOCETAXEL
     Dates: start: 201602, end: 201607
  4. DENOSUMAB [Concomitant]
     Active Substance: DENOSUMAB
     Dates: start: 201808
  5. NAB-PACLITAXEL [Suspect]
     Active Substance: PACLITAXEL
     Indication: BREAST CANCER
     Dosage: ON DAYS 1, 8 AND 15 OF EACH 4-WEEK TREATMENT CYCLE
     Route: 065
     Dates: start: 20200227, end: 20200611
  6. DENOSUMAB [Suspect]
     Active Substance: DENOSUMAB
     Indication: BREAST CANCER
     Route: 058
     Dates: start: 20200227, end: 20200611
  7. LETROZOLE. [Concomitant]
     Active Substance: LETROZOLE
     Indication: BREAST CANCER
     Dates: start: 201912

REACTIONS (3)
  - Lymphadenitis [Recovered/Resolved]
  - Immune-mediated hepatitis [Unknown]
  - Pyrexia [Recovered/Resolved]
